FAERS Safety Report 21466255 (Version 1)
Quarter: 2022Q4

REPORT INFORMATION
  Report Type: Spontaneous
  Country: US (occurrence: None)
  Receive Date: 20221014
  Receipt Date: 20221014
  Transmission Date: 20230112
  Serious: Yes (Disabling, Other)
  Sender: FDA-Public Use
  Company Number: None

PATIENT
  Age: 59 Year
  Sex: Female
  Weight: 62.1 kg

DRUGS (4)
  1. LAMOTRIGINE [Suspect]
     Active Substance: LAMOTRIGINE
     Indication: Epilepsy
  2. ZONISAMIDE [Concomitant]
     Active Substance: ZONISAMIDE
  3. FLUOXETINE [Concomitant]
     Active Substance: FLUOXETINE HYDROCHLORIDE
  4. ACETAMINOPHEN [Concomitant]
     Active Substance: ACETAMINOPHEN

REACTIONS (17)
  - Product dispensing error [None]
  - Therapy interrupted [None]
  - Seizure [None]
  - Fall [None]
  - Hallucination, auditory [None]
  - Memory impairment [None]
  - Dizziness [None]
  - Clumsiness [None]
  - Depression [None]
  - Social avoidant behaviour [None]
  - Suicidal ideation [None]
  - Pain [None]
  - Gastrointestinal disorder [None]
  - Incorrect dose administered [None]
  - Confusional state [None]
  - Speech disorder [None]
  - Cognitive disorder [None]

NARRATIVE: CASE EVENT DATE: 20220320
